FAERS Safety Report 7600480-4 (Version None)
Quarter: 2011Q2

REPORT INFORMATION
  Report Type: 
  Country: None (occurrence: None)
  Receive Date: 20110629
  Receipt Date: 20110627
  Transmission Date: 20111010
  Serious: Yes (Death)
  Sender: FDA-Public Use
  Company Number: 1000021777

PATIENT
  Age: 85 Year
  Sex: Male

DRUGS (8)
  1. AZOPT (BRINZOLAMIDE) (BRINZOLAMIDE) [Concomitant]
  2. NAMENDA [Suspect]
     Indication: DEMENTIA ALZHEIMER'S TYPE
     Dosage: 5 MG (5 MG, 1 IN 1 D), ORAL 10 MG (5 MG, 2 IN 1 D), ORAL 10 MG AM/ 5 MG PM, ORAL
     Route: 048
     Dates: start: 20110603, end: 20110603
  3. NAMENDA [Suspect]
     Indication: DEMENTIA ALZHEIMER'S TYPE
     Dosage: 5 MG (5 MG, 1 IN 1 D), ORAL 10 MG (5 MG, 2 IN 1 D), ORAL 10 MG AM/ 5 MG PM, ORAL
     Route: 048
     Dates: start: 20110527, end: 20110602
  4. NAMENDA [Suspect]
     Indication: DEMENTIA ALZHEIMER'S TYPE
     Dosage: 5 MG (5 MG, 1 IN 1 D), ORAL 10 MG (5 MG, 2 IN 1 D), ORAL 10 MG AM/ 5 MG PM, ORAL
     Route: 048
     Dates: start: 20110520, end: 20110526
  5. STOMACH MEDICATION (NOS) (STOMACH MEDICATION) (NOS) (STOCMACH MEDICATI [Concomitant]
  6. LEVOBUNOLOL (LEVOBUNOLOL) (LEVOBUNOLOL) [Concomitant]
  7. ZOLPIDEM (ZOLPIDEM) (ZOLPIDEM) [Concomitant]
  8. FINASTERIDE (FINASTERIDE) (FINASTERIDE) [Concomitant]

REACTIONS (2)
  - COMPLETED SUICIDE [None]
  - GUN SHOT WOUND [None]
